FAERS Safety Report 10446270 (Version 4)
Quarter: 2017Q1

REPORT INFORMATION
  Report Type: Spontaneous
  Country: FI (occurrence: FI)
  Receive Date: 20140911
  Receipt Date: 20170111
  Transmission Date: 20170428
  Serious: Yes (Death)
  Sender: FDA-Public Use
  Company Number: FI-ROCHE-1459741

PATIENT
  Age: 46 Year
  Sex: Female

DRUGS (3)
  1. MABTHERA [Suspect]
     Active Substance: RITUXIMAB
     Indication: DERMATOMYOSITIS
     Dosage: 1000 MG PLUS 1000 MG, TOTALLY SEVEN CYCLES, FORM: CONCENTRATE FOR SOLUTION FOR INJECTIONS
     Route: 042
     Dates: start: 201103, end: 201405
  2. METHOTREXATE. [Concomitant]
     Active Substance: METHOTREXATE
     Route: 058
     Dates: end: 201405
  3. METHOTREXATE. [Concomitant]
     Active Substance: METHOTREXATE
     Indication: DERMATOMYOSITIS
     Dosage: START FROM 25 MG DECREASED TO15 MG ONCE WEEKLY
     Route: 058
     Dates: start: 200810

REACTIONS (1)
  - Progressive multifocal leukoencephalopathy [Fatal]

NARRATIVE: CASE EVENT DATE: 201406
